FAERS Safety Report 6319469-0 (Version None)
Quarter: 2009Q3

REPORT INFORMATION
  Report Type: 
  Country: None (occurrence: None)
  Receive Date: 20090822
  Receipt Date: 20080909
  Transmission Date: 20100115
  Serious: No
  Sender: FDA-Public Use
  Company Number: US-ABBOTT-08P-163-0475246-00

PATIENT
  Sex: Male
  Weight: 98.518 kg

DRUGS (5)
  1. NIASPAN [Suspect]
     Indication: HIGH DENSITY LIPOPROTEIN DECREASED
     Route: 048
  2. NIASPAN [Suspect]
     Dosage: QD DOSE INCREASED 500 MG INCREMENTS EVERY 4 WKS
     Route: 048
  3. LISINOPRIL [Concomitant]
     Indication: HYPERTENSION
  4. ASPIRIN [Concomitant]
     Indication: DRUG USE FOR UNKNOWN INDICATION
  5. PRAVASTATIN SODIUM [Concomitant]
     Indication: HYPERLIPIDAEMIA

REACTIONS (2)
  - FLATULENCE [None]
  - SKIN ODOUR ABNORMAL [None]
